FAERS Safety Report 8837506 (Version 2)
Quarter: 2012Q4

REPORT INFORMATION
  Report Type: 
  Country: US (occurrence: US)
  Receive Date: 20121012
  Receipt Date: 20121105
  Transmission Date: 20130627
  Serious: No
  Sender: FDA-Public Use
  Company Number: US-PFIZER INC-2012252677

PATIENT
  Age: 47 Year
  Sex: Male
  Weight: 90.7 kg

DRUGS (4)
  1. CHANTIX [Suspect]
     Indication: SMOKING CESSATION THERAPY
     Dosage: UNK
     Route: 048
  2. SIMVASTATIN [Concomitant]
     Indication: HIGH CHOLESTEROL
     Dosage: 10 mg, UNK
  3. PRILOSEC [Concomitant]
     Dosage: UNK
  4. LAMICTAL [Concomitant]
     Dosage: UNK

REACTIONS (6)
  - Drug ineffective [Unknown]
  - Aggression [Unknown]
  - Personality change [Unknown]
  - Hypertension [Unknown]
  - Blood cholesterol increased [Unknown]
  - Feeling abnormal [Unknown]
